FAERS Safety Report 24439913 (Version 1)
Quarter: 2024Q4

REPORT INFORMATION
  Report Type: Spontaneous
  Country: ES (occurrence: ES)
  Receive Date: 20241015
  Receipt Date: 20241015
  Transmission Date: 20250115
  Serious: Yes (Hospitalization)
  Sender: CIPLA
  Company Number: ES-AEMPS-1576051

PATIENT

DRUGS (1)
  1. RIVAROXABAN [Suspect]
     Active Substance: RIVAROXABAN
     Indication: Atrial fibrillation
     Dosage: 20 MILLIGRAM, QD
     Route: 048
     Dates: start: 202202, end: 20240828

REACTIONS (1)
  - Haematoma muscle [Recovered/Resolved]

NARRATIVE: CASE EVENT DATE: 20240715
